FAERS Safety Report 7819685-2 (Version None)
Quarter: 2011Q4

REPORT INFORMATION
  Report Type: 
  Country: None (occurrence: None)
  Receive Date: 20111018
  Receipt Date: 20110303
  Transmission Date: 20120403
  Serious: No
  Sender: FDA-Public Use
  Company Number: US-ASTRAZENECA-2011SE11846

PATIENT
  Sex: Male

DRUGS (9)
  1. SYMBICORT [Suspect]
     Indication: WHEEZING
     Dosage: 1 PUFFS BID
     Route: 055
     Dates: start: 20110101
  2. IBUPROFEN [Concomitant]
  3. FLEXERIL [Concomitant]
  4. NORCO [Concomitant]
  5. METFORMIN HYDROCHLORIDE [Concomitant]
  6. LISINOPRIL AND HYDROCHLOROTHIAZIDE [Concomitant]
  7. SYMBICORT [Suspect]
     Indication: DYSPNOEA
     Dosage: 1 PUFFS BID
     Route: 055
     Dates: start: 20110101
  8. HYDROCODONE BITARTRATE [Concomitant]
  9. LASIX [Concomitant]

REACTIONS (1)
  - PAIN IN EXTREMITY [None]
